FAERS Safety Report 22227680 (Version 4)
Quarter: 2023Q2

REPORT INFORMATION
  Report Type: Report from Study
  Country: CH (occurrence: CH)
  Receive Date: 20230419
  Receipt Date: 20230530
  Transmission Date: 20230722
  Serious: No
  Sender: FDA-Public Use
  Company Number: CH-ABBVIE-4733958

PATIENT
  Age: 76 Year
  Sex: Male

DRUGS (11)
  1. CARBIDOPA\LEVODOPA [Suspect]
     Active Substance: CARBIDOPA\LEVODOPA
     Indication: Parkinson^s disease
     Dosage: MD 9.0ML, CRD 6.5ML/H, ED 3.5ML, CRN 4.0 ML/H, FREQUENCY TEXT: 24H THERAPY
     Route: 050
     Dates: start: 20221213
  2. CARBIDOPA\LEVODOPA [Suspect]
     Active Substance: CARBIDOPA\LEVODOPA
     Dosage: MD 9.0ML, CRD 3.7ML/H, ED 1.5ML, CRN 2.1 ML/H, FREQUENCY TEXT: 24H THERAPY
     Route: 050
     Dates: start: 20220919, end: 20221003
  3. CARBIDOPA\LEVODOPA [Suspect]
     Active Substance: CARBIDOPA\LEVODOPA
     Dosage: MD 11.0ML, CRD 2.5 ML/H, ED 1.0ML, FREQUENCY TEXT: 16H THERAPY
     Route: 050
     Dates: start: 20220913, end: 20220914
  4. CARBIDOPA\LEVODOPA [Suspect]
     Active Substance: CARBIDOPA\LEVODOPA
     Dosage: MD 9.0ML, CRD 5.5ML/H, ED 3.5ML, CRN 3.5 ML/H, FREQUENCY TEXT: 24H THERAPY
     Route: 050
     Dates: start: 20221003, end: 20221102
  5. CARBIDOPA\LEVODOPA [Suspect]
     Active Substance: CARBIDOPA\LEVODOPA
     Dosage: MD 7.0ML, CRD 3.3 ML/H, ED 1.0ML, CRN 1.8 ML/H
     Route: 050
     Dates: start: 20220914, end: 20220916
  6. CARBIDOPA\LEVODOPA [Suspect]
     Active Substance: CARBIDOPA\LEVODOPA
     Dosage: MD 9.0ML, CRD 3.7ML/H, ED 1.0ML, CRN 2.1 ML/HC, FREQUENCY TEXT: 24H THERAPY
     Route: 050
     Dates: start: 20220916, end: 20220919
  7. CARBIDOPA\LEVODOPA [Suspect]
     Active Substance: CARBIDOPA\LEVODOPA
     Dosage: MD 9.0ML, CRD 6.0ML/H, ED 3.5ML, CRN 3.5 ML/H, FREQUENCY TEXT: 24H THERAPY
     Route: 050
     Dates: start: 20221102, end: 20221213
  8. AZILECT [Concomitant]
     Active Substance: RASAGILINE MESYLATE
     Indication: Parkinson^s disease
     Dates: start: 20220928
  9. ROPINIROLE [Concomitant]
     Active Substance: ROPINIROLE
     Indication: Parkinson^s disease
     Dosage: TIME INTERVAL: 0.33333333 DAYS
     Dates: start: 20220804, end: 20220928
  10. AZILECT [Concomitant]
     Active Substance: RASAGILINE MESYLATE
     Indication: Parkinson^s disease
     Dates: start: 20220928
  11. NEUPRO [Concomitant]
     Active Substance: ROTIGOTINE
     Indication: Product used for unknown indication
     Dates: start: 20220928

REACTIONS (7)
  - Stoma site discharge [Not Recovered/Not Resolved]
  - Stoma site irritation [Recovering/Resolving]
  - Freezing phenomenon [Not Recovered/Not Resolved]
  - Dry mouth [Not Recovered/Not Resolved]
  - Stoma site hypergranulation [Recovering/Resolving]
  - Salivary hypersecretion [Recovering/Resolving]
  - Dyskinesia [Not Recovered/Not Resolved]

NARRATIVE: CASE EVENT DATE: 20230401
